FAERS Safety Report 24699457 (Version 1)
Quarter: 2024Q4

REPORT INFORMATION
  Report Type: Spontaneous
  Country: US (occurrence: US)
  Receive Date: 20241205
  Receipt Date: 20241205
  Transmission Date: 20250115
  Serious: No
  Sender: TEVA
  Company Number: US-TEVA-VS-3266123

PATIENT
  Age: 69 Year
  Sex: Female

DRUGS (9)
  1. FIORICET [Suspect]
     Active Substance: ACETAMINOPHEN\BUTALBITAL\CAFFEINE
     Indication: Product used for unknown indication
     Route: 065
     Dates: start: 202102, end: 202102
  2. TOPAMAX [Concomitant]
     Active Substance: TOPIRAMATE
     Indication: Product used for unknown indication
     Dates: start: 20160101
  3. ADVAIR DISKUS [Concomitant]
     Active Substance: FLUTICASONE PROPIONATE\SALMETEROL XINAFOATE
     Indication: Product used for unknown indication
     Dates: start: 20090101
  4. TRAMADOL HCL [Concomitant]
     Active Substance: TRAMADOL HYDROCHLORIDE
     Indication: Product used for unknown indication
     Dates: start: 20140101
  5. CYCLOBENZAPRINE [Concomitant]
     Active Substance: CYCLOBENZAPRINE
     Indication: Product used for unknown indication
     Dates: start: 20150601
  6. OSPHENA [Concomitant]
     Active Substance: OSPEMIFENE
     Indication: Product used for unknown indication
     Dates: start: 20121201
  7. FLUOXETINE HYDROCHLORIDE (PROZAC) [Concomitant]
     Indication: Product used for unknown indication
     Dates: start: 20240701
  8. LIDOCAINE [Concomitant]
     Active Substance: LIDOCAINE
     Indication: Product used for unknown indication
     Dates: start: 20140101
  9. XYREM [Suspect]
     Active Substance: SODIUM OXYBATE
     Indication: Narcolepsy
     Route: 065

REACTIONS (1)
  - Nervousness [Unknown]
